FAERS Safety Report 9157167 (Version 1)
Quarter: 2013Q1

REPORT INFORMATION
  Report Type: Spontaneous
  Country: US (occurrence: US)
  Receive Date: 20130312
  Receipt Date: 20130312
  Transmission Date: 20140127
  Serious: Yes (Other)
  Sender: FDA-Public Use
  Company Number: US-PFIZER INC-2013082048

PATIENT
  Age: 52 Year
  Sex: Female
  Weight: 62.59 kg

DRUGS (4)
  1. CHANTIX [Suspect]
     Indication: SMOKING CESSATION THERAPY
     Dosage: 0.5 MG, 1X/DAY
     Route: 048
     Dates: start: 201302, end: 201303
  2. MATZIM LA [Concomitant]
     Indication: HYPERTENSION
     Dosage: 180 MG, 1X/DAY
     Route: 048
  3. QVAR [Concomitant]
     Indication: ASTHMA
     Dosage: 40 UG, UNK
     Route: 055
  4. QVAR [Concomitant]
     Indication: DYSPNOEA

REACTIONS (6)
  - Rash [Not Recovered/Not Resolved]
  - Erythema [Not Recovered/Not Resolved]
  - Sunburn [Not Recovered/Not Resolved]
  - Skin exfoliation [Not Recovered/Not Resolved]
  - Pruritus [Not Recovered/Not Resolved]
  - Inappropriate schedule of drug administration [Unknown]
